FAERS Safety Report 8315870-4 (Version None)
Quarter: 2012Q2

REPORT INFORMATION
  Report Type: 
  Country: None (occurrence: None)
  Receive Date: 20120427
  Receipt Date: 20120419
  Transmission Date: 20120825
  Serious: Yes (Hospitalization)
  Sender: FDA-Public Use
  Company Number: DE-BIOGENIDEC-2011BI040897

PATIENT
  Age: 37 Year
  Sex: Female

DRUGS (2)
  1. AVONEX [Suspect]
     Indication: RELAPSING-REMITTING MULTIPLE SCLEROSIS
     Route: 030
     Dates: start: 20050101, end: 20110813
  2. AVONEX [Suspect]
     Route: 030
     Dates: start: 20110813

REACTIONS (3)
  - MULTIPLE SCLEROSIS RELAPSE [None]
  - APPENDICITIS [None]
  - INFLUENZA LIKE ILLNESS [None]
